FAERS Safety Report 5844132-X (Version None)
Quarter: 2008Q3

REPORT INFORMATION
  Report Type: 
  Country: None (occurrence: None)
  Receive Date: 20080813
  Receipt Date: 20080804
  Transmission Date: 20090109
  Serious: Yes (Hospitalization)
  Sender: FDA-Public Use
  Company Number: CN-PFIZER INC-2008055780

PATIENT
  Age: 62 Year
  Sex: Female

DRUGS (4)
  1. VFEND [Suspect]
     Indication: PULMONARY MYCOSIS
     Route: 042
  2. VFEND [Suspect]
     Route: 048
     Dates: start: 20080629, end: 20080703
  3. VFEND [Suspect]
     Route: 048
     Dates: start: 20080706
  4. TIENAM [Concomitant]

REACTIONS (3)
  - COMA [None]
  - HYPOCHLORAEMIA [None]
  - HYPONATRAEMIA [None]
